FAERS Safety Report 6578487-8 (Version None)
Quarter: 2010Q1

REPORT INFORMATION
  Report Type: 
  Country: None (occurrence: None)
  Receive Date: 20100211
  Receipt Date: 20100202
  Transmission Date: 20100710
  Serious: Yes (Hospitalization, Other)
  Sender: FDA-Public Use
  Company Number: PHHY2009MX58480

PATIENT
  Age: 68 Year
  Sex: Female

DRUGS (2)
  1. EXFORGE [Suspect]
     Indication: HYPERTENSION
     Dosage: 2 TABLETS (160/10 MG) PER DAY
     Dates: start: 20050801, end: 20080116
  2. EXFORGE [Suspect]
     Dosage: 1 TABLETS (160/10MG) PER DAY
     Dates: start: 20080121

REACTIONS (1)
  - INFARCTION [None]
